FAERS Safety Report 16880141 (Version 1)
Quarter: 2019Q4

REPORT INFORMATION
  Report Type: Spontaneous
  Country: US (occurrence: US)
  Receive Date: 20190807
  Receipt Date: 20190807
  Transmission Date: 20200122
  Serious: No
  Sender: FDA-Public Use
  Company Number: None

PATIENT
  Age: 46 Year
  Sex: Male

DRUGS (1)
  1. ENBREL [Suspect]
     Active Substance: ETANERCEPT
     Indication: PSORIATIC ARTHROPATHY
     Dosage: ?          OTHER
     Route: 058
     Dates: start: 201901

REACTIONS (3)
  - Product dose omission [None]
  - Memory impairment [None]
  - Arthralgia [None]

NARRATIVE: CASE EVENT DATE: 20190701
